FAERS Safety Report 10306613 (Version 1)
Quarter: 2014Q3

REPORT INFORMATION
  Report Type: Spontaneous
  Country: US (occurrence: US)
  Receive Date: 20140715
  Receipt Date: 20140715
  Transmission Date: 20150326
  Serious: No
  Sender: FDA-Public Use
  Company Number: US-PFIZER INC-2014194069

PATIENT
  Age: 65 Year
  Sex: Male
  Weight: 70.3 kg

DRUGS (1)
  1. ADVIL PM [Suspect]
     Active Substance: DIPHENHYDRAMINE CITRATE\IBUPROFEN
     Dosage: 200 MG, AS NEEDED (SOMETIMES ONE A DAY OR SOMETIME 1 OR 2 IN THE MIDDLE OF NIGHT)
     Dates: start: 201407

REACTIONS (2)
  - Intentional product misuse [Unknown]
  - Somnolence [Unknown]

NARRATIVE: CASE EVENT DATE: 201407
